FAERS Safety Report 14943456 (Version 1)
Quarter: 2018Q2

REPORT INFORMATION
  Report Type: Spontaneous
  Country: US (occurrence: US)
  Receive Date: 20180528
  Receipt Date: 20180528
  Transmission Date: 20180711
  Serious: Yes (Life-Threatening, Hospitalization, Other)
  Sender: FDA-Public Use
  Company Number: US-APOTEX-2018AP015069

PATIENT
  Age: 25 Year
  Sex: Male

DRUGS (9)
  1. OXYCODONE [Suspect]
     Active Substance: OXYCODONE
     Indication: COMPLEX REGIONAL PAIN SYNDROME
     Dosage: 10 MG, TID
     Route: 065
  2. ONDANSETRON [Concomitant]
     Active Substance: ONDANSETRON
     Indication: NAUSEA
     Dosage: 4 MG, UNK
     Route: 042
  3. DULOXETINE. [Suspect]
     Active Substance: DULOXETINE
     Indication: COMPLEX REGIONAL PAIN SYNDROME
     Dosage: 30 MG, Q.AM (IN THE MORNING)
     Route: 065
  4. TIZANIDINE. [Suspect]
     Active Substance: TIZANIDINE
     Indication: COMPLEX REGIONAL PAIN SYNDROME
     Dosage: 4 MG, BID
     Route: 065
  5. GABAPENTIN. [Suspect]
     Active Substance: GABAPENTIN
     Indication: COMPLEX REGIONAL PAIN SYNDROME
     Dosage: 600 MG, TID
     Route: 065
  6. DICLOFENAC POTASSIUM. [Suspect]
     Active Substance: DICLOFENAC POTASSIUM
     Indication: COMPLEX REGIONAL PAIN SYNDROME
     Dosage: 75 MG, BID
     Route: 065
  7. DULOXETINE. [Suspect]
     Active Substance: DULOXETINE
     Dosage: 60 MG, Q.H.S.
     Route: 065
  8. LAMOTRIGINE. [Suspect]
     Active Substance: LAMOTRIGINE
     Indication: COMPLEX REGIONAL PAIN SYNDROME
     Dosage: 25 MG, BID
     Route: 065
  9. ONDANSETRON [Concomitant]
     Active Substance: ONDANSETRON
     Dosage: UNK, PRN
     Route: 065

REACTIONS (3)
  - Serotonin syndrome [Recovered/Resolved]
  - Drug ineffective [Unknown]
  - Potentiating drug interaction [Unknown]
